FAERS Safety Report 6031169-3 (Version None)
Quarter: 2008Q4

REPORT INFORMATION
  Report Type: 
  Country: None (occurrence: None)
  Receive Date: 20081224
  Receipt Date: 20080915
  Transmission Date: 20090506
  Serious: Yes (Hospitalization)
  Sender: FDA-Public Use
  Company Number: GXBR2008US01831

PATIENT
  Age: 71 Year
  Sex: Female
  Weight: 63.5 kg

DRUGS (8)
  1. BUPROPION HCL [Suspect]
     Indication: DEPRESSION
     Dosage: 150 MG, TID, ORAL
     Route: 048
     Dates: start: 20080410, end: 20080821
  2. PRILOSEC [Concomitant]
  3. MOBIC [Concomitant]
  4. ZYRTEC [Concomitant]
  5. PREMARIN [Concomitant]
  6. PAXIL [Concomitant]
  7. TRAZODONE HCL [Concomitant]
  8. METHADONE HCL [Concomitant]

REACTIONS (4)
  - ARRHYTHMIA [None]
  - BLISTER [None]
  - EUPHORIC MOOD [None]
  - PRURITUS [None]
